FAERS Safety Report 4755542-6 (Version None)
Quarter: 2005Q3

REPORT INFORMATION
  Report Type: 
  Country: None (occurrence: None)
  Receive Date: 20050830
  Receipt Date: 20050511
  Transmission Date: 20060218
  Serious: Yes (Hospitalization, Other)
  Sender: FDA-Public Use
  Company Number: US-BRISTOL-MYERS SQUIBB COMPANY-12964730

PATIENT
  Age: 47 Year
  Sex: Male

DRUGS (7)
  1. ABILIFY [Suspect]
     Indication: BIPOLAR DISORDER
     Dates: start: 20050322, end: 20050403
  2. PLAVIX [Concomitant]
  3. AMBIEN [Concomitant]
  4. PEPCID [Concomitant]
  5. ZOCOR [Concomitant]
  6. KLONOPIN [Concomitant]
  7. WELLBUTRIN SR [Concomitant]

REACTIONS (1)
  - CEREBROVASCULAR ACCIDENT [None]
